FAERS Safety Report 16993674 (Version 1)
Quarter: 2019Q4

REPORT INFORMATION
  Report Type: Spontaneous
  Country: US (occurrence: US)
  Receive Date: 20191105
  Receipt Date: 20191105
  Transmission Date: 20200122
  Serious: No
  Sender: FDA-Public Use
  Company Number: US-FAGRON STERILE SERVICES-2076456

PATIENT
  Age: 39 Year
  Sex: Male
  Weight: 103 kg

DRUGS (1)
  1. EPHEDRINE SULFATE 10MG/ML 50MG/5ML IN A 5ML SYRINGE [Suspect]
     Active Substance: EPHEDRINE SULFATE
     Route: 042
     Dates: start: 20191029, end: 20191029

REACTIONS (1)
  - Drug ineffective [None]
